FAERS Safety Report 25120839 (Version 1)
Quarter: 2025Q1

REPORT INFORMATION
  Report Type: Report from Study
  Country: US (occurrence: US)
  Receive Date: 20250325
  Receipt Date: 20250325
  Transmission Date: 20250409
  Serious: Yes (Hospitalization)
  Sender: ABBVIE
  Company Number: US-ABBVIE-6188518

PATIENT
  Sex: Male

DRUGS (1)
  1. RINVOQ [Suspect]
     Active Substance: UPADACITINIB
     Indication: Crohn^s disease
     Route: 048
     Dates: start: 20240518

REACTIONS (4)
  - Gastrointestinal dilation procedure [Recovering/Resolving]
  - Blood cholesterol increased [Not Recovered/Not Resolved]
  - Post procedural haemorrhage [Recovering/Resolving]
  - Inflammation [Recovering/Resolving]
